FAERS Safety Report 10017840 (Version 2)
Quarter: 2014Q2

REPORT INFORMATION
  Report Type: Report from Study
  Country: US (occurrence: US)
  Receive Date: 20140318
  Receipt Date: 20140428
  Transmission Date: 20141212
  Serious: Yes (Other)
  Sender: FDA-Public Use
  Company Number: US-ASTELLAS-2014US002524

PATIENT
  Age: 54 Year
  Sex: Female

DRUGS (15)
  1. ERLOTINIB [Suspect]
     Indication: NON-SMALL CELL LUNG CANCER
     Route: 048
     Dates: start: 20140128
  2. AVASTIN                            /01555201/ [Suspect]
     Indication: LUNG NEOPLASM MALIGNANT
     Route: 042
     Dates: start: 2013, end: 20130813
  3. FOLIC ACID [Concomitant]
     Indication: PRODUCT USED FOR UNKNOWN INDICATION
     Route: 048
     Dates: start: 201304
  4. CALCIUM [Concomitant]
     Indication: PRODUCT USED FOR UNKNOWN INDICATION
     Dosage: UNK, UNKNOWN FREQ.
     Route: 065
  5. ACETAMINOPHEN [Concomitant]
     Indication: PAIN
     Dosage: 500/600 MG, PRN
     Route: 048
  6. ONDASETRON                         /00955301/ [Concomitant]
     Indication: NAUSEA
     Route: 048
     Dates: start: 201306
  7. KEPPRA [Concomitant]
     Indication: CONVULSION
     Route: 048
     Dates: start: 20130319
  8. PROCRIT                            /00928302/ [Concomitant]
     Indication: PRODUCT USED FOR UNKNOWN INDICATION
     Dosage: UNK, UNKNOWN FREQ.
     Route: 065
  9. DECADRON                           /00016001/ [Concomitant]
     Indication: PRODUCT USED FOR UNKNOWN INDICATION
     Dosage: 8 MG, 2 DAYS BEFORE CHEMO AND 2 DAYS AFTER CHEMO
     Route: 048
     Dates: start: 2013
  10. PANTOPRAZOLE [Concomitant]
     Indication: GASTROOESOPHAGEAL REFLUX DISEASE
     Dosage: UNK, AS NEEDED
     Route: 065
     Dates: start: 201306
  11. ALIMTA [Concomitant]
     Indication: PRODUCT USED FOR UNKNOWN INDICATION
     Dosage: UNK UNK, UNKNOWN FREQ.
     Route: 065
     Dates: end: 201308
  12. NEULASTA [Concomitant]
     Indication: PRODUCT USED FOR UNKNOWN INDICATION
     Dosage: UNK, UNKNOWN FREQ.
     Route: 065
  13. TAXOTERE [Concomitant]
     Indication: PRODUCT USED FOR UNKNOWN INDICATION
     Dosage: UNK, UNKNOWN FREQ.
     Route: 065
     Dates: end: 20130905
  14. CARBOPLATIN [Concomitant]
     Indication: PRODUCT USED FOR UNKNOWN INDICATION
     Dosage: UNK, UNKNOWN FREQ.
     Route: 065
  15. AREDIA [Concomitant]
     Indication: PRODUCT USED FOR UNKNOWN INDICATION
     Dosage: 90 MG, 1 IN 4 WEEKS
     Route: 048
     Dates: start: 201310

REACTIONS (11)
  - Eye pruritus [Recovered/Resolved]
  - Lacrimation increased [Recovered/Resolved]
  - Facial pain [Unknown]
  - Weight fluctuation [Unknown]
  - Surgical failure [Unknown]
  - Growth of eyelashes [Recovered/Resolved]
  - Hair texture abnormal [Recovered/Resolved]
  - Blister [Unknown]
  - Rash [Not Recovered/Not Resolved]
  - Dry skin [Unknown]
  - Wound [Not Recovered/Not Resolved]
